FAERS Safety Report 7466883-6 (Version None)
Quarter: 2011Q2

REPORT INFORMATION
  Report Type: 
  Country: None (occurrence: None)
  Receive Date: 20110509
  Receipt Date: 20100924
  Transmission Date: 20111010
  Serious: No
  Sender: FDA-Public Use
  Company Number: US-ALEXION-A201001256

PATIENT
  Sex: Female

DRUGS (22)
  1. MAGNESIUM OXIDE [Concomitant]
     Indication: RENAL FAILURE CHRONIC
     Dosage: 400 MG, TID
  2. AMILORIDE HYDROCHLORIDE [Concomitant]
     Indication: ELECTROLYTE IMBALANCE
  3. ATIVAN [Concomitant]
     Dosage: 1 MG, Q6H PRN
  4. PHENERGAN                          /00033001/ [Concomitant]
     Dosage: UNK
  5. VITAMIN C                          /00008001/ [Concomitant]
     Dosage: 500 MG, QD
  6. ZYRTEC [Concomitant]
     Dosage: 10 MG, QD
  7. ZEMPLAR [Concomitant]
     Indication: RENAL FAILURE CHRONIC
     Dosage: 1 UG, QD
  8. BENADRYL [Concomitant]
     Indication: PRURITUS
     Dosage: UNK
  9. POTASSIUM CHLORIDE [Concomitant]
     Indication: ELECTROLYTE IMBALANCE
     Dosage: 50 MEQ, TID
  10. AMILORIDE HYDROCHLORIDE [Concomitant]
     Indication: RENAL FAILURE CHRONIC
     Dosage: 5 MG, QD
  11. SPIRONOLACTONE [Concomitant]
     Indication: ELECTROLYTE IMBALANCE
     Dosage: 34.5 MG, QD
  12. CALCIUM W/VITAMIN D                /00188401/ [Concomitant]
     Indication: RENAL FAILURE CHRONIC
     Dosage: 500 MG, BID
  13. POTASSIUM CHLORIDE [Concomitant]
     Indication: RENAL FAILURE CHRONIC
     Dosage: 400 MEQ, QD
  14. AMBIEN [Concomitant]
     Dosage: 10 MG, QHS
  15. OXYCODONE [Concomitant]
     Indication: BREAKTHROUGH PAIN
     Dosage: UNK
  16. FOLIC ACID [Concomitant]
     Dosage: 1 MG, QD
  17. DILAUDID [Concomitant]
     Dosage: 4 MG, PRN
  18. CALCIUM W/VITAMIN D                /00188401/ [Concomitant]
     Indication: ELECTROLYTE IMBALANCE
  19. ZEMPLAR [Concomitant]
     Indication: ELECTROLYTE IMBALANCE
  20. SOLIRIS [Suspect]
     Indication: PAROXYSMAL NOCTURNAL HAEMOGLOBINURIA
     Dosage: 900 MG, Q2W
     Route: 042
     Dates: start: 20060101
  21. MAGNESIUM OXIDE [Concomitant]
     Indication: ELECTROLYTE IMBALANCE
  22. SPIRONOLACTONE [Concomitant]
     Indication: RENAL FAILURE CHRONIC
     Dosage: 25 MG, QD

REACTIONS (8)
  - BONE PAIN [None]
  - TRANSFUSION REACTION [None]
  - FATIGUE [None]
  - HAEMOGLOBIN DECREASED [None]
  - HEADACHE [None]
  - DYSPNOEA [None]
  - MYALGIA [None]
  - HAEMOLYSIS [None]
